FAERS Safety Report 11498495 (Version 2)
Quarter: 2015Q3

REPORT INFORMATION
  Report Type: Spontaneous
  Country: ES (occurrence: ES)
  Receive Date: 20150911
  Receipt Date: 20150914
  Transmission Date: 20151125
  Serious: Yes (Death, Hospitalization, Other)
  Sender: FDA-Public Use
  Company Number: ES-SEATTLE GENETICS-2015SGN01479

PATIENT

DRUGS (2)
  1. OMEPRAZOLE. [Concomitant]
     Active Substance: OMEPRAZOLE
     Dosage: UNK
  2. BRENTUXIMAB VEDOTIN [Suspect]
     Active Substance: BRENTUXIMAB VEDOTIN
     Indication: HODGKIN^S DISEASE
     Dosage: 170 MG, UNK
     Route: 042
     Dates: start: 20150819

REACTIONS (12)
  - Febrile neutropenia [Unknown]
  - Multi-organ failure [Fatal]
  - Hypocalcaemia [Unknown]
  - Hypomagnesaemia [Unknown]
  - Respiratory failure [Unknown]
  - Transaminases increased [Unknown]
  - Platelet count decreased [Unknown]
  - Sepsis [Unknown]
  - Anaemia [Unknown]
  - Hypophosphataemia [Unknown]
  - Mucosal inflammation [Unknown]
  - Hypokalaemia [Unknown]

NARRATIVE: CASE EVENT DATE: 20150902
